FAERS Safety Report 11661096 (Version 2)
Quarter: 2015Q4

REPORT INFORMATION
  Report Type: Spontaneous
  Country: US (occurrence: US)
  Receive Date: 20151026
  Receipt Date: 20151123
  Transmission Date: 20160304
  Serious: No
  Sender: FDA-Public Use
  Company Number: US-ROXANE LABORATORIES, INC.-2015-RO-01738RO

PATIENT
  Age: 9 Year
  Sex: Male

DRUGS (1)
  1. OXCARBAZEPINE. [Suspect]
     Active Substance: OXCARBAZEPINE
     Indication: AFFECTIVE DISORDER
     Dosage: 600 MG
     Route: 065
     Dates: start: 201509

REACTIONS (2)
  - Product quality issue [Unknown]
  - Oral discomfort [Unknown]
